FAERS Safety Report 10230450 (Version 2)
Quarter: 2014Q2

REPORT INFORMATION
  Report Type: Spontaneous
  Country: US (occurrence: US)
  Receive Date: 20140611
  Receipt Date: 20140611
  Transmission Date: 20141212
  Serious: No
  Sender: FDA-Public Use
  Company Number: US-INCYTE CORPORATION-2014IN000612

PATIENT
  Age: 72 Year
  Sex: Female
  Weight: 78.01 kg

DRUGS (10)
  1. JAKAFI [Suspect]
     Indication: MYELOFIBROSIS
     Dosage: 5 MG, BID
     Route: 048
     Dates: start: 20140211
  2. NITROFURANTOIN [Concomitant]
  3. CALTRATE                           /00944201/ [Concomitant]
  4. SELENIUM [Concomitant]
  5. ENABLEX [Concomitant]
  6. MELOXICAM [Concomitant]
  7. HYDROCHLOROTHIAZIDE [Concomitant]
  8. SULFAMETHOXAZOLE AND TRIMETHOPRIM [Concomitant]
  9. NEXIUM                             /01479302/ [Concomitant]
  10. LEVOTHROID [Concomitant]

REACTIONS (2)
  - Fatigue [Unknown]
  - Drug ineffective [Unknown]
